FAERS Safety Report 25864332 (Version 1)
Quarter: 2025Q3

REPORT INFORMATION
  Report Type: Spontaneous
  Country: US (occurrence: None)
  Receive Date: 20250929
  Receipt Date: 20250929
  Transmission Date: 20251021
  Serious: Yes (Other)
  Sender: FDA-CTU
  Company Number: None

PATIENT
  Age: 69 Year
  Sex: Male

DRUGS (2)
  1. JUBBONTI [Suspect]
     Active Substance: DENOSUMAB-BBDZ
     Indication: Senile osteoporosis
     Dosage: FREQUENCY : WEEKLY;?
  2. DUPIXENT [Suspect]
     Active Substance: DUPILUMAB

REACTIONS (10)
  - Arthralgia [None]
  - Wrong technique in product usage process [None]
  - Pain in extremity [None]
  - Muscle spasms [None]
  - Gait inability [None]
  - Fibrin D dimer increased [None]
  - Road traffic accident [None]
  - Chest discomfort [None]
  - Bronchitis [None]
  - Viral infection [None]
